FAERS Safety Report 5824542-7 (Version None)
Quarter: 2008Q3

REPORT INFORMATION
  Report Type: 
  Country: None (occurrence: None)
  Receive Date: 20080728
  Receipt Date: 20080715
  Transmission Date: 20090109
  Serious: Yes (Life-Threatening)
  Sender: FDA-Public Use
  Company Number: AU-ROCHE-574085

PATIENT
  Sex: Male

DRUGS (2)
  1. PEGASYS [Suspect]
     Indication: HEPATITIS C
     Route: 065
     Dates: start: 20070705, end: 20071221
  2. RIBAVIRIN [Concomitant]
     Dosage: DRUG NAME: RBV
     Dates: start: 20070705, end: 20071221

REACTIONS (3)
  - ABDOMINAL PAIN [None]
  - B-CELL LYMPHOMA [None]
  - NIGHT SWEATS [None]
